FAERS Safety Report 4635336-2 (Version None)
Quarter: 2005Q2

REPORT INFORMATION
  Report Type: 
  Country: None (occurrence: None)
  Receive Date: 20050414
  Receipt Date: 20050407
  Transmission Date: 20051028
  Serious: Yes (Other)
  Sender: FDA-Public Use
  Company Number: GB-ABBOTT-05P-167-0296849-00

PATIENT
  Sex: Female

DRUGS (4)
  1. DEPAKOTE [Suspect]
     Indication: POSTPARTUM DEPRESSION
     Route: 065
     Dates: end: 20050301
  2. DEPAKOTE [Suspect]
     Indication: ANGER
  3. PILL [Concomitant]
     Indication: CONTRACEPTION
  4. QUETIAPINE [Concomitant]
     Indication: DRUG USE FOR UNKNOWN INDICATION

REACTIONS (7)
  - ABORTION SPONTANEOUS [None]
  - ALOPECIA [None]
  - HIRSUTISM [None]
  - HYPOTRICHOSIS [None]
  - MALAISE [None]
  - THROMBOCYTOPENIA [None]
  - VISUAL DISTURBANCE [None]
